FAERS Safety Report 21669693 (Version 2)
Quarter: 2022Q4

REPORT INFORMATION
  Report Type: Spontaneous
  Country: IT (occurrence: None)
  Receive Date: 20221201
  Receipt Date: 20221220
  Transmission Date: 20230112
  Serious: Yes (Hospitalization)
  Sender: FDA-Public Use
  Company Number: 2022A389095

PATIENT
  Age: 90 Year
  Sex: Female
  Weight: 60 kg

DRUGS (3)
  1. QUETIAPINE [Suspect]
     Active Substance: QUETIAPINE
     Dosage: 300.0MG ONCE/SINGLE ADMINISTRATION
     Route: 048
     Dates: start: 20221120, end: 20221120
  2. VALPROATE SODIUM [Suspect]
     Active Substance: VALPROATE SODIUM
     Dosage: SINGLE ADMINISTRATION 1 CP DEPAKIN 500 MG FOR THERAPEUTIC ERROR500.0MG ONCE/SINGLE ADMINISTRATION
     Route: 048
     Dates: start: 20221120, end: 20221120
  3. CHLORPROMAZINE [Suspect]
     Active Substance: CHLORPROMAZINE
     Dosage: MONOS ADMINISTRATION OF 1 CP 25 MG THERAPEUTIC ERROR25.0MG ONCE/SINGLE ADMINISTRATION
     Route: 048
     Dates: start: 20221120, end: 20221120

REACTIONS (2)
  - Sopor [Recovering/Resolving]
  - Medication error [Recovering/Resolving]

NARRATIVE: CASE EVENT DATE: 20221120
